FAERS Safety Report 13485297 (Version 1)
Quarter: 2017Q2

REPORT INFORMATION
  Report Type: Spontaneous
  Country: NL (occurrence: DE)
  Receive Date: 20170426
  Receipt Date: 20170426
  Transmission Date: 20170830
  Serious: Yes (Hospitalization)
  Sender: FDA-Public Use
  Company Number: NL-NOVAST LABORATORIES, LTD-DE-2017NOV000025

PATIENT
  Age: 51 Year

DRUGS (2)
  1. ANDROCUR [Suspect]
     Active Substance: CYPROTERONE ACETATE
     Indication: HORMONE THERAPY
     Dosage: 50 MG, BID, OVER 25 YEARS
  2. LEVONORGESTREL\ETHINYL ESTRADIOL [Suspect]
     Active Substance: ETHINYL ESTRADIOL\LEVONORGESTREL
     Indication: HORMONE THERAPY
     Dosage: 50 ?G, BID, OVER 25 YEARS

REACTIONS (1)
  - Meningioma [Recovered/Resolved]
